FAERS Safety Report 11868348 (Version 2)
Quarter: 2016Q1

REPORT INFORMATION
  Report Type: Report from Study
  Country: FR (occurrence: FR)
  Receive Date: 20151224
  Receipt Date: 20160113
  Transmission Date: 20160526
  Serious: Yes (Death)
  Sender: FDA-Public Use
  Company Number: FR-ROCHE-1682882

PATIENT

DRUGS (1)
  1. ALTEPLASE [Suspect]
     Active Substance: ALTEPLASE
     Indication: ISCHAEMIC STROKE
     Dosage: 0.9 MG/KG WITH 10% BOLUS AND THE REMAINDER INFUSED OVER 1 HR PERIOD (MAX DOSE OF 90MG)
     Route: 042

REACTIONS (1)
  - Death [Fatal]
